FAERS Safety Report 25245887 (Version 1)
Quarter: 2025Q2

REPORT INFORMATION
  Report Type: Report from Study
  Country: CA (occurrence: CA)
  Receive Date: 20250428
  Receipt Date: 20250428
  Transmission Date: 20250716
  Serious: Yes (Death, Other)
  Sender: SANDOZ
  Company Number: CA-SANDOZ-SDZ2025CA026518

PATIENT
  Sex: Male

DRUGS (1)
  1. WYOST [Suspect]
     Active Substance: DENOSUMAB-BBDZ
     Indication: Metastatic bone disease prophylaxis
     Dosage: 120 MG/ML, Q4W (120 MG/ML; MONTHLY (Q4WEEKS)
     Route: 058

REACTIONS (1)
  - Death [Fatal]
